FAERS Safety Report 7562058-0 (Version None)
Quarter: 2011Q2

REPORT INFORMATION
  Report Type: 
  Country: None (occurrence: None)
  Receive Date: 20110622
  Receipt Date: 20110408
  Transmission Date: 20111010
  Serious: No
  Sender: FDA-Public Use
  Company Number: PHHO2006FI02692

PATIENT
  Sex: Female
  Weight: 50 kg

DRUGS (13)
  1. GILENYA [Suspect]
     Indication: MULTIPLE SCLEROSIS
     Dosage: 1.25 MG, DAY
     Route: 048
     Dates: start: 20040811, end: 20060213
  2. COUGH AND COLD PREPARATIONS [Concomitant]
  3. C-VITAMIN [Concomitant]
  4. ECHINAFORCE [Concomitant]
  5. OTRIVIN [Concomitant]
  6. DESOGESTREL AND ETHINYL ESTRADIOL [Concomitant]
  7. FUCITHALMIC [Concomitant]
  8. BAFUCIN [Concomitant]
  9. RESILAR [Concomitant]
  10. OFTAN-AKVAKOL [Concomitant]
  11. FINREXIN [Concomitant]
  12. MEDIPEKT [Concomitant]
  13. ACETAMINOPHEN [Concomitant]

REACTIONS (1)
  - DRUG EXPOSURE DURING PREGNANCY [None]
